FAERS Safety Report 9503805 (Version 3)
Quarter: 2013Q4

REPORT INFORMATION
  Report Type: Spontaneous
  Country: CO (occurrence: CO)
  Receive Date: 20130906
  Receipt Date: 20131017
  Transmission Date: 20140711
  Serious: Yes (Life-Threatening)
  Sender: FDA-Public Use
  Company Number: CO-MERCK-1309COL002547

PATIENT
  Age: 41 Year
  Sex: Male
  Weight: 65 kg

DRUGS (3)
  1. PEG-INTRON [Suspect]
     Indication: HEPATITIS C
     Dosage: FORMULATION: PEGINTERFERON ALFA 2B/PEG-INTRON 100 MCG/AMPULE HEPATITIS VIRUS / HCV HBV
     Route: 058
     Dates: start: 20130322
  2. RIBAVIRIN [Suspect]
     Indication: HEPATITIS C
     Dosage: 100 MG DAILY
     Route: 048
     Dates: start: 20130322
  3. TELAPREVIR [Suspect]
     Indication: HEPATITIS C
     Dosage: UNK
     Route: 065

REACTIONS (4)
  - Blood albumin abnormal [Not Recovered/Not Resolved]
  - Thrombocytopenia [Not Recovered/Not Resolved]
  - Liver disorder [Not Recovered/Not Resolved]
  - No therapeutic response [Unknown]
